FAERS Safety Report 4750547-3 (Version None)
Quarter: 2005Q3

REPORT INFORMATION
  Report Type: 
  Country: None (occurrence: None)
  Receive Date: 20050818
  Receipt Date: 20050802
  Transmission Date: 20060218
  Serious: Yes (Hospitalization)
  Sender: FDA-Public Use
  Company Number: AE 2005/0369

PATIENT
  Sex: Female

DRUGS (1)
  1. REGURIN (TROSPIUM CHLORIDE) 20MG TABLETS [Suspect]

REACTIONS (1)
  - DRUG HYPERSENSITIVITY [None]
